FAERS Safety Report 9274680 (Version 2)
Quarter: 2013Q2

REPORT INFORMATION
  Report Type: Report from Study
  Country: BR (occurrence: BR)
  Receive Date: 20130507
  Receipt Date: 20130514
  Transmission Date: 20140414
  Serious: Yes (Death)
  Sender: FDA-Public Use
  Company Number: BR-ROCHE-1220874

PATIENT
  Sex: Female

DRUGS (1)
  1. ACTEMRA [Suspect]
     Indication: SYSTEMIC LUPUS ERYTHEMATOSUS
     Route: 042
     Dates: start: 20120903, end: 20120917

REACTIONS (4)
  - Pericardial effusion [Fatal]
  - Somnolence [Unknown]
  - Swelling [Unknown]
  - Nervousness [Unknown]
